FAERS Safety Report 17104915 (Version 1)
Quarter: 2019Q4

REPORT INFORMATION
  Report Type: Spontaneous
  Country: NL (occurrence: NL)
  Receive Date: 20191203
  Receipt Date: 20191203
  Transmission Date: 20200122
  Serious: Yes (Other)
  Sender: FDA-Public Use
  Company Number: NVSC2019NL053393

PATIENT
  Age: 55 Year
  Sex: Female

DRUGS (4)
  1. TACROLIMUS. [Suspect]
     Active Substance: TACROLIMUS
     Indication: NON-SMALL CELL LUNG CANCER STAGE IV
     Dosage: 0.1 MG/KG, QD
     Route: 065
  2. PREDNISONE. [Suspect]
     Active Substance: PREDNISONE
     Dosage: 2 MG/KG, QD
     Route: 065
  3. MYCOPHENOLATE MOFETIL. [Suspect]
     Active Substance: MYCOPHENOLATE MOFETIL
     Indication: NON-SMALL CELL LUNG CANCER STAGE IV
     Dosage: 2000 MG/KG, QD
     Route: 065
  4. PREDNISONE. [Suspect]
     Active Substance: PREDNISONE
     Indication: NON-SMALL CELL LUNG CANCER STAGE IV
     Dosage: 1 MG/KG, QD
     Route: 065

REACTIONS (6)
  - Non-small cell lung cancer [Unknown]
  - Tinnitus [Unknown]
  - Product use in unapproved indication [Unknown]
  - Susac^s syndrome [Unknown]
  - Vasculitis [Unknown]
  - Metastases to central nervous system [Unknown]
